FAERS Safety Report 16836001 (Version 1)
Quarter: 2019Q3

REPORT INFORMATION
  Report Type: Spontaneous
  Country: CN (occurrence: CN)
  Receive Date: 20190920
  Receipt Date: 20190920
  Transmission Date: 20191005
  Serious: Yes (Other)
  Sender: FDA-Public Use
  Company Number: CN-BAXTER-2019BAX018272

PATIENT
  Age: 50 Year
  Sex: Female
  Weight: 64 kg

DRUGS (12)
  1. 0.9% SODIUM CHLORIDE INJECTION [Suspect]
     Active Substance: SODIUM CHLORIDE
     Dosage: EPIRUBICIN HYDROCHLORIDE+NS, FOR FIRST CHEMOTHERAPY
     Route: 041
  2. ENDOXAN [Suspect]
     Active Substance: CYCLOPHOSPHAMIDE
     Indication: BREAST CANCER FEMALE
     Dosage: CYCLOPHOSPHAMIDE+NS, FOR FIRST CHEMOTHERAPY
     Route: 042
  3. ENDOXAN [Suspect]
     Active Substance: CYCLOPHOSPHAMIDE
     Dosage: CYCLOPHOSPHAMIDE 980 MG DILUTED WITH NS 50 ML, FOR SECOND CHEMOTHERAPY
     Route: 042
     Dates: start: 20190628, end: 20190628
  4. ENDOXAN [Suspect]
     Active Substance: CYCLOPHOSPHAMIDE
     Dosage: DOSE RE-INTRODUCED, CYCLOPHOSPHAMIDE+NS
     Route: 042
  5. PHARMORUBICIN RD [Suspect]
     Active Substance: EPIRUBICIN
     Indication: BREAST CANCER FEMALE
     Dosage: EPIRUBICIN HYDROCHLORIDE +NS, FOR FIRST CHEMOTHERAPY
     Route: 041
  6. 0.9% SODIUM CHLORIDE INJECTION [Suspect]
     Active Substance: SODIUM CHLORIDE
     Indication: MEDICATION DILUTION
     Dosage: CYCLOPHOSPHAMIDE + NS, FOR FIRST CHEMOTHERAPY
     Route: 042
  7. 0.9% SODIUM CHLORIDE INJECTION [Suspect]
     Active Substance: SODIUM CHLORIDE
     Dosage: DOSE RE-INTRODUCED, CYCLOPHOSPHAMIDE+NS
     Route: 042
  8. 0.9% SODIUM CHLORIDE INJECTION [Suspect]
     Active Substance: SODIUM CHLORIDE
     Dosage: CYCLOPHOSPHAMIDE 980 MG DILUTED WITH NS 50 ML, FOR SECOND CHEMOTHERAPY
     Route: 042
     Dates: start: 20190628, end: 20190628
  9. 0.9% SODIUM CHLORIDE INJECTION [Suspect]
     Active Substance: SODIUM CHLORIDE
     Dosage: DOSE RE-INTRODUCED, EPIRUBICIN HYDROCHLORIDE + NS
     Route: 041
  10. PHARMORUBICIN RD [Suspect]
     Active Substance: EPIRUBICIN
     Dosage: EPIRUBICIN HYDROCHLORIDE138 MG DILUTED WITH NS 100 ML, FOR SECOND CHEMOTHERAPY
     Route: 041
     Dates: start: 20190628, end: 20190628
  11. 0.9% SODIUM CHLORIDE INJECTION [Suspect]
     Active Substance: SODIUM CHLORIDE
     Dosage: EPIRUBICIN HYDROCHLORIDE138 MG DILUTED WITH NS 100 ML, FOR SECOND CHEMOTHERAPY
     Route: 041
     Dates: start: 20190628, end: 20190628
  12. PHARMORUBICIN RD [Suspect]
     Active Substance: EPIRUBICIN
     Dosage: DOSE RE-INTRODUCED, EPIRUBICIN HYDROCHLORIDE+NS
     Route: 041

REACTIONS (1)
  - Agranulocytosis [Recovered/Resolved]

NARRATIVE: CASE EVENT DATE: 20190712
